FAERS Safety Report 18343857 (Version 1)
Quarter: 2020Q4

REPORT INFORMATION
  Report Type: Spontaneous
  Country: US (occurrence: US)
  Receive Date: 20201002
  Receipt Date: 20201002
  Transmission Date: 20210114
  Serious: Yes (Death)
  Sender: FDA-Public Use
  Company Number: None

PATIENT
  Age: 72 Year
  Sex: Female

DRUGS (2)
  1. TACROLIMUS 0.5MG [Suspect]
     Active Substance: TACROLIMUS
     Dosage: 1 MG/0.5 MG
     Dates: start: 20190306, end: 20190930
  2. ZENPEP [Suspect]
     Active Substance: PANCRELIPASE AMYLASE\PANCRELIPASE LIPASE\PANCRELIPASE PROTEASE
     Dosage: ?          OTHER DOSE:18 CAPS ;?
     Route: 048
     Dates: start: 20190506, end: 20200930

REACTIONS (1)
  - Death [None]

NARRATIVE: CASE EVENT DATE: 20200930
